FAERS Safety Report 8621263-2 (Version None)
Quarter: 2012Q3

REPORT INFORMATION
  Report Type: 
  Country: None (occurrence: None)
  Receive Date: 20120824
  Receipt Date: 20120823
  Transmission Date: 20120928
  Serious: Yes (Death, Hospitalization)
  Sender: FDA-Public Use
  Company Number: AU-B.I. PHARMACEUTICALS,INC./RIDGEFIELD-2012-AU-01384AU

PATIENT
  Sex: Female
  Weight: 62.2 kg

DRUGS (7)
  1. PRADAXA [Suspect]
     Indication: CEREBROVASCULAR ACCIDENT PROPHYLAXIS
     Dates: start: 20110805
  2. PRADAXA [Suspect]
     Indication: ATRIAL FIBRILLATION
  3. ATENOLOL [Concomitant]
  4. NEXIUM [Concomitant]
  5. LOVAZA [Concomitant]
  6. DIGOXIN [Concomitant]
  7. VITAMIN D [Concomitant]

REACTIONS (1)
  - CEREBROVASCULAR ACCIDENT [None]
